FAERS Safety Report 4267628-3 (Version None)
Quarter: 2004Q1

REPORT INFORMATION
  Report Type: 
  Country: None (occurrence: None)
  Receive Date: 20040109
  Receipt Date: 20031024
  Transmission Date: 20041129
  Serious: No
  Sender: FDA-Public Use
  Company Number: US-GLAXOSMITHKLINE-A0431807A

PATIENT
  Age: 78 Year
  Sex: Female

DRUGS (5)
  1. WELLBUTRIN [Suspect]
     Indication: DEPRESSION
     Dosage: 300MG PER DAY
     Route: 048
     Dates: start: 19930101
  2. PREVACID [Concomitant]
  3. SYNTHROID [Concomitant]
  4. PREMARIN [Concomitant]
  5. COZAAR [Concomitant]

REACTIONS (6)
  - INFLUENZA LIKE ILLNESS [None]
  - NERVOUSNESS [None]
  - POLLAKIURIA [None]
  - TINNITUS [None]
  - TREMOR [None]
  - WEIGHT DECREASED [None]
